FAERS Safety Report 17170589 (Version 1)
Quarter: 2019Q4

REPORT INFORMATION
  Report Type: Report from Study
  Country: FR (occurrence: FR)
  Receive Date: 20191218
  Receipt Date: 20191218
  Transmission Date: 20200122
  Serious: Yes (Hospitalization)
  Sender: FDA-Public Use
  Company Number: FR-PFIZER INC-2019536596

PATIENT
  Age: 84 Year
  Sex: Female
  Weight: 70 kg

DRUGS (14)
  1. LEUCOVORIN [FOLINIC ACID] [Suspect]
     Active Substance: LEUCOVORIN
     Indication: COLORECTAL CANCER METASTATIC
     Dosage: UNK UNK, CYCLIC (QCY)
     Route: 042
     Dates: start: 20171026, end: 20171026
  2. BISOCE [Concomitant]
     Active Substance: BISOPROLOL
     Indication: HYPERTENSION
     Dosage: 7.5 MG, 1X/DAY (QD)
     Route: 048
  3. CRESTOR [Concomitant]
     Active Substance: ROSUVASTATIN CALCIUM
     Indication: HYPERCHOLESTEROLAEMIA
     Dosage: 5 MG, 1X/DAY (QD)
     Route: 048
  4. DOLIPRANE [Concomitant]
     Active Substance: ACETAMINOPHEN
     Indication: PAIN
     Dosage: 1 G, EVERY 2 DAYS
     Route: 048
  5. NOVORAPID [Concomitant]
     Active Substance: INSULIN ASPART
     Indication: DIABETES MELLITUS
     Dosage: 100 DF, UNK, (100 IU/ML,UNK)
     Route: 058
  6. HAVLANE [Concomitant]
     Active Substance: LOPRAZOLAM
     Indication: INSOMNIA
     Dosage: 1 MG, 1X/DAY (QD)
     Route: 048
  7. CANDESARTAN. [Concomitant]
     Active Substance: CANDESARTAN
     Indication: HYPERTENSION
     Dosage: 8 MG, 1X/DAY (QD)
     Route: 048
  8. LANTUS [Concomitant]
     Active Substance: INSULIN GLARGINE
     Indication: DIABETES MELLITUS
     Dosage: 16 IU, 1X/DAY, (16 IU,UNK)
     Route: 058
  9. FLUDEX [INDAPAMIDE] [Concomitant]
     Active Substance: INDAPAMIDE
     Indication: DIURETIC THERAPY
     Dosage: 1.5 MG, 1X/DAY (QD)
     Route: 048
  10. INIPOMP [Concomitant]
     Active Substance: PANTOPRAZOLE SODIUM
     Indication: GASTROOESOPHAGEAL REFLUX DISEASE
     Dosage: 40 MG, 1X/DAY (QD)
     Route: 048
  11. IRINOTECAN HCL [Suspect]
     Active Substance: IRINOTECAN HYDROCHLORIDE
     Indication: COLORECTAL CANCER METASTATIC
     Dosage: UNK UNK, CYCLIC (QCY)
     Route: 042
     Dates: start: 20171026, end: 20171026
  12. FLUOROURACIL. [Suspect]
     Active Substance: FLUOROURACIL
     Indication: COLORECTAL CANCER METASTATIC
     Dosage: UNK UNK, CYCLIC (QCY)
     Route: 042
     Dates: start: 20171026, end: 20171026
  13. AFLIBERCEPT [Suspect]
     Active Substance: AFLIBERCEPT
     Indication: COLORECTAL CANCER METASTATIC
     Dosage: UNK UNK, CYCLIC
     Route: 042
     Dates: start: 20171026, end: 20171026
  14. ONGLYZA [Concomitant]
     Active Substance: SAXAGLIPTIN HYDROCHLORIDE
     Indication: DIABETES MELLITUS
     Dosage: 5 MG, EVERY 12 HOURS (BID)
     Route: 048

REACTIONS (1)
  - General physical health deterioration [Not Recovered/Not Resolved]

NARRATIVE: CASE EVENT DATE: 20171028
